FAERS Safety Report 9527671 (Version 1)
Quarter: 2013Q1

REPORT INFORMATION
  Report Type: Spontaneous
  Country: US (occurrence: None)
  Receive Date: 20130314
  Receipt Date: 20130314
  Transmission Date: 20140127
  Serious: Yes (Life-Threatening)
  Sender: FDA-Public Use
  Company Number: THYM-1003475

PATIENT
  Sex: Male

DRUGS (1)
  1. THYMOGLOBULIN (ANTI-THYMOCYTE GLOBULIN (RABBIT)) POWDER FOR SOLUTION FOR INFUSION [Suspect]
     Indication: PRODUCT USED FOR UNKNOWN INDICATION
     Dosage: UNK, UNKNOWN

REACTIONS (1)
  - Anaphylactic shock [None]
